FAERS Safety Report 6797791-1 (Version None)
Quarter: 2010Q2

REPORT INFORMATION
  Report Type: 
  Country: None (occurrence: None)
  Receive Date: 20100623
  Receipt Date: 20100611
  Transmission Date: 20101027
  Serious: Yes (Disabling, Other)
  Sender: FDA-Public Use
  Company Number: ACO_01116_2010

PATIENT
  Sex: Female
  Weight: 74.8435 kg

DRUGS (11)
  1. AMPYRA [Suspect]
     Indication: SPINAL CORD INJURY
     Dosage: (10 MG 1X ORAL)
     Route: 048
     Dates: start: 20100520, end: 20100520
  2. ACYCLOVIR [Concomitant]
  3. BACLOFEN [Concomitant]
  4. DETROL LA [Concomitant]
  5. DIAZEPAM [Concomitant]
  6. NUTROFURANTOIN [Concomitant]
  7. MECLIZINE [Concomitant]
  8. QUALAQUIN [Concomitant]
  9. TRAMADOL [Concomitant]
  10. VICODIN [Concomitant]
  11. ZYRTEC [Concomitant]

REACTIONS (2)
  - DIPLEGIA [None]
  - FEELING COLD [None]
